FAERS Safety Report 10633826 (Version 1)
Quarter: 2014Q4

REPORT INFORMATION
  Report Type: Spontaneous
  Country: US (occurrence: None)
  Receive Date: 20141203
  Receipt Date: 20141203
  Transmission Date: 20150529
  Serious: Yes (Life-Threatening, Hospitalization)
  Sender: FDA-Public Use
  Company Number: 2642258

PATIENT
  Age: 59 Year
  Sex: Male
  Weight: 102.9 kg

DRUGS (3)
  1. CYTARABINE. [Suspect]
     Active Substance: CYTARABINE
     Indication: ACUTE MYELOID LEUKAEMIA
     Dosage: 214 MG MILLIGRAM(S), UNKNOWN, INTRAVENOUS DRIP
     Route: 041
     Dates: start: 20140630, end: 20140706
  2. DAUNORUBICIN [Suspect]
     Active Substance: DAUNORUBICIN
     Indication: ACUTE MYELOID LEUKAEMIA
     Dosage: 128 MG MILLIGRAM(S), UNKNOWN, INTRAVENOUS BOLUS
     Route: 040
     Dates: start: 20140630, end: 20140702
  3. INVESTIGATIONAL DRUG [Concomitant]
     Active Substance: INVESTIGATIONAL PRODUCT

REACTIONS (6)
  - Intracranial pressure increased [None]
  - Subdural haematoma [None]
  - Confusional state [None]
  - Pancytopenia [None]
  - Disorientation [None]
  - Photopsia [None]

NARRATIVE: CASE EVENT DATE: 20140730
